FAERS Safety Report 21511864 (Version 1)
Quarter: 2022Q4

REPORT INFORMATION
  Report Type: Report from Study
  Country: KR (occurrence: KR)
  Receive Date: 20221027
  Receipt Date: 20221027
  Transmission Date: 20230112
  Serious: Yes (Other)
  Sender: FDA-Public Use
  Company Number: KR-NOVARTISPH-NVSC2022KR240366

PATIENT
  Age: 71 Year
  Sex: Male

DRUGS (12)
  1. BEOVU [Suspect]
     Active Substance: BROLUCIZUMAB-DBLL
     Indication: Neovascular age-related macular degeneration
     Dosage: 6 MG
     Route: 031
     Dates: start: 20220609, end: 20220609
  2. BEOVU [Suspect]
     Active Substance: BROLUCIZUMAB-DBLL
     Dosage: 6 MG
     Route: 031
     Dates: start: 20220901, end: 20220901
  3. OROCIN [Concomitant]
     Indication: Evidence based treatment
     Dosage: 1 DRP, QD (EYE DROP)
     Route: 047
     Dates: start: 20220609, end: 20220609
  4. OROCIN [Concomitant]
     Dosage: 1 DRP, QD (EYE DROP)
     Route: 047
     Dates: start: 20220901, end: 20220901
  5. PARACAINE [Concomitant]
     Active Substance: PROPARACAINE HYDROCHLORIDE
     Indication: Evidence based treatment
     Dosage: 1 DRP, QD (EYE DROP)
     Route: 047
     Dates: start: 20220609, end: 20220609
  6. PARACAINE [Concomitant]
     Active Substance: PROPARACAINE HYDROCHLORIDE
     Dosage: 1 DRP, QD (EYE DROP)
     Route: 047
     Dates: start: 20220901, end: 20220901
  7. OCUFLOX [Concomitant]
     Active Substance: OFLOXACIN
     Indication: Evidence based treatment
     Dosage: 1 DRP, QD
     Route: 047
     Dates: start: 20220609, end: 20220609
  8. OCUFLOX [Concomitant]
     Active Substance: OFLOXACIN
     Dosage: 1 DRP, QD
     Route: 047
     Dates: start: 20220901, end: 20220901
  9. VIGAMOX [Concomitant]
     Active Substance: MOXIFLOXACIN HYDROCHLORIDE
     Indication: Evidence based treatment
     Dosage: 1 DRP, TID
     Route: 047
     Dates: start: 20220609, end: 20220611
  10. VIGAMOX [Concomitant]
     Active Substance: MOXIFLOXACIN HYDROCHLORIDE
     Dosage: 1 DRP, TID
     Route: 047
     Dates: start: 20220901, end: 20220903
  11. TROPHERINE [Concomitant]
     Indication: Evidence based treatment
     Dosage: 1 DRP, QD
     Route: 047
     Dates: start: 20220609, end: 20220609
  12. TROPHERINE [Concomitant]
     Dosage: 1 DRP, QD
     Route: 047
     Dates: start: 20220901, end: 20220901

REACTIONS (1)
  - Idiopathic orbital inflammation [Recovered/Resolved]

NARRATIVE: CASE EVENT DATE: 20220915
